FAERS Safety Report 9501291 (Version 1)
Quarter: 2013Q3

REPORT INFORMATION
  Report Type: Spontaneous
  Country: US (occurrence: US)
  Receive Date: 20130905
  Receipt Date: 20130905
  Transmission Date: 20140515
  Serious: No
  Sender: FDA-Public Use
  Company Number: US-009507513-1309USA001799

PATIENT
  Sex: Female

DRUGS (1)
  1. NASONEX [Suspect]
     Indication: RHINITIS ALLERGIC
     Dosage: AS NEEDED,1 STANDARD DOSE OF 17
     Route: 045
     Dates: start: 20130513

REACTIONS (3)
  - Rhinitis allergic [Unknown]
  - Drug dose omission [Unknown]
  - Product quality issue [Unknown]
